FAERS Safety Report 8543906-4 (Version None)
Quarter: 2012Q3

REPORT INFORMATION
  Report Type: 
  Country: None (occurrence: None)
  Receive Date: 20120727
  Receipt Date: 20120716
  Transmission Date: 20120928
  Serious: Yes (Hospitalization)
  Sender: FDA-Public Use
  Company Number: CA-FRI-1000037376

PATIENT
  Sex: Female

DRUGS (1)
  1. ROFLUMILAST [Suspect]
     Indication: CHRONIC OBSTRUCTIVE PULMONARY DISEASE
     Dosage: 500 MCG
     Route: 048
     Dates: start: 20120523, end: 20120701

REACTIONS (13)
  - DYSPNOEA [None]
  - PANIC ATTACK [None]
  - DIARRHOEA [None]
  - ANXIETY [None]
  - NAUSEA [None]
  - DECREASED APPETITE [None]
  - HEART RATE IRREGULAR [None]
  - PAIN IN EXTREMITY [None]
  - HEADACHE [None]
  - INSOMNIA [None]
  - DYSPHAGIA [None]
  - TREMOR [None]
  - WEIGHT DECREASED [None]
